FAERS Safety Report 16504055 (Version 2)
Quarter: 2019Q3

REPORT INFORMATION
  Report Type: Report from Study
  Country: JP (occurrence: JP)
  Receive Date: 20190701
  Receipt Date: 20190724
  Transmission Date: 20191004
  Serious: Yes (Death, Hospitalization)
  Sender: FDA-Public Use
  Company Number: PHJP2018JP002228

PATIENT
  Age: 72 Year
  Sex: Female

DRUGS (2)
  1. MEKINIST [Suspect]
     Active Substance: TRAMETINIB DIMETHYL SULFOXIDE
     Indication: MALIGNANT MELANOMA STAGE IV
     Dosage: 2 MG, QD
     Route: 048
     Dates: start: 20160701, end: 20160801
  2. TAFINLAR [Suspect]
     Active Substance: DABRAFENIB MESYLATE
     Indication: MALIGNANT MELANOMA STAGE IV
     Dosage: 300 MG, QD
     Route: 048
     Dates: start: 20160701, end: 20160801

REACTIONS (13)
  - Metastases to bone [Fatal]
  - Malignant melanoma stage IV [Fatal]
  - Ileus [Not Recovered/Not Resolved]
  - Metastases to pleura [Fatal]
  - Drug ineffective [Unknown]
  - Malignant neoplasm progression [Fatal]
  - Metastases to abdominal cavity [Fatal]
  - Metastases to lung [Fatal]
  - Abdominal distension [Not Recovered/Not Resolved]
  - Sepsis [Not Recovered/Not Resolved]
  - Pallor [Unknown]
  - Pyrexia [Recovering/Resolving]
  - Decreased appetite [Unknown]

NARRATIVE: CASE EVENT DATE: 20160715
